FAERS Safety Report 6972951-5 (Version None)
Quarter: 2010Q3

REPORT INFORMATION
  Report Type: 
  Country: None (occurrence: None)
  Receive Date: 20100909
  Receipt Date: 20100524
  Transmission Date: 20110219
  Serious: No
  Sender: FDA-Public Use
  Company Number: US-KINGPHARMUSA00001-K201000645

PATIENT
  Sex: Female
  Weight: 68.027 kg

DRUGS (7)
  1. EMBEDA [Suspect]
     Indication: PAIN
     Dosage: 50 MG, BID
     Route: 048
     Dates: start: 20100521, end: 20100524
  2. EMBEDA [Suspect]
     Indication: NEUROPATHY PERIPHERAL
  3. EMBEDA [Suspect]
     Indication: INTERVERTEBRAL DISC DISORDER
  4. MS CONTIN [Concomitant]
     Indication: BREAKTHROUGH PAIN
     Dosage: UNK
  5. XANAX [Concomitant]
     Indication: ANXIETY
     Dosage: UNK
  6. OTHER HYPNOTICS AND SEDATIVES [Concomitant]
     Indication: SLEEP DISORDER
     Dosage: UNK
  7. ADDERALL 10 [Concomitant]
     Indication: HORMONE REPLACEMENT THERAPY
     Dosage: QAM

REACTIONS (3)
  - DRUG INEFFECTIVE [None]
  - MUSCLE SPASMS [None]
  - NERVE COMPRESSION [None]
